FAERS Safety Report 25406451 (Version 1)
Quarter: 2025Q2

REPORT INFORMATION
  Report Type: Spontaneous
  Country: US (occurrence: US)
  Receive Date: 20250606
  Receipt Date: 20250606
  Transmission Date: 20250717
  Serious: Yes (Other)
  Sender: FERRING
  Company Number: US-FERRINGPH-2025FE02790

PATIENT

DRUGS (1)
  1. ZOMACTON [Suspect]
     Active Substance: SOMATROPIN
     Indication: Product used for unknown indication
     Route: 065
     Dates: start: 2023, end: 20250501

REACTIONS (1)
  - Spinal osteoarthritis [Unknown]
